FAERS Safety Report 21953276 (Version 1)
Quarter: 2023Q1

REPORT INFORMATION
  Report Type: Report from Study
  Country: CA (occurrence: CA)
  Receive Date: 20230204
  Receipt Date: 20230204
  Transmission Date: 20230418
  Serious: Yes (Other)
  Sender: FDA-Public Use
  Company Number: None

PATIENT
  Age: 48 Year
  Sex: Female

DRUGS (3)
  1. MONTELUKAST [Suspect]
     Active Substance: MONTELUKAST SODIUM
     Indication: Chronic spontaneous urticaria
     Dosage: MONTELUKAST
     Route: 065
  2. REACTINE [Concomitant]
     Indication: Chronic spontaneous urticaria
     Dosage: 2 EVERY 1 DAYS
     Route: 048
  3. RUPATADINE FUMARATE [Concomitant]
     Active Substance: RUPATADINE FUMARATE
     Indication: Chronic spontaneous urticaria
     Dosage: 2 EVERY 1 DAYS
     Route: 048

REACTIONS (6)
  - Eczema [Unknown]
  - Haemorrhage [Unknown]
  - Middle insomnia [Unknown]
  - Scratch [Unknown]
  - Skin disorder [Unknown]
  - Urticaria [Unknown]
